FAERS Safety Report 6154930-3 (Version None)
Quarter: 2009Q2

REPORT INFORMATION
  Report Type: 
  Country: None (occurrence: None)
  Receive Date: 20090414
  Receipt Date: 20090403
  Transmission Date: 20091009
  Serious: Yes (Hospitalization)
  Sender: FDA-Public Use
  Company Number: SE-PFIZER INC-2009182522

PATIENT

DRUGS (1)
  1. SOMATROPIN [Suspect]
     Indication: HYPOPITUITARISM
     Dosage: 05 MG, 1X/DAY

REACTIONS (1)
  - MYOCARDIAL INFARCTION [None]
